FAERS Safety Report 7076120-2 (Version None)
Quarter: 2010Q4

REPORT INFORMATION
  Report Type: 
  Country: None (occurrence: None)
  Receive Date: 20101021
  Receipt Date: 20101019
  Transmission Date: 20110411
  Serious: Yes (Death)
  Sender: FDA-Public Use
  Company Number: AE10-004 FOLLOW-UP

PATIENT
  Age: 22 Year
  Sex: Male
  Weight: 108.4097 kg

DRUGS (1)
  1. HYDROCODONE BITARTRATE + ACETAMINOPHEN [Suspect]
     Indication: PROCEDURAL PAIN

REACTIONS (8)
  - BRONCHOPNEUMONIA [None]
  - CELL DEATH [None]
  - CEREBRAL HAEMORRHAGE [None]
  - HEPATIC CONGESTION [None]
  - PANCREATIC DISORDER [None]
  - PULMONARY CONGESTION [None]
  - PULMONARY OEDEMA [None]
  - RESPIRATORY FAILURE [None]
